FAERS Safety Report 25399826 (Version 1)
Quarter: 2025Q2

REPORT INFORMATION
  Report Type: Spontaneous
  Country: US (occurrence: US)
  Receive Date: 20250605
  Receipt Date: 20250605
  Transmission Date: 20250716
  Serious: Yes (Life-Threatening, Hospitalization)
  Sender: DR REDDYS
  Company Number: None

PATIENT
  Age: 23 Year
  Sex: Female

DRUGS (18)
  1. PREGABALIN [Suspect]
     Active Substance: PREGABALIN
     Indication: Agitation
  2. PREGABALIN [Suspect]
     Active Substance: PREGABALIN
     Indication: Pain
  3. VALPROIC ACID [Suspect]
     Active Substance: VALPROIC ACID
     Indication: Agitation
  4. OXYCODONE [Suspect]
     Active Substance: OXYCODONE
     Indication: Agitation
  5. OXYCODONE [Suspect]
     Active Substance: OXYCODONE
     Indication: Pain
     Dosage: 2.5-7.5 MG/DAY
  6. ISONIAZID [Suspect]
     Active Substance: ISONIAZID
     Indication: Pulmonary tuberculosis
  7. LITHIUM [Suspect]
     Active Substance: LITHIUM
     Indication: Agitation
     Dosage: TITRATED TO 600 MG/DAY
  8. LITHIUM [Suspect]
     Active Substance: LITHIUM
     Indication: Abnormal behaviour
  9. LITHIUM [Suspect]
     Active Substance: LITHIUM
     Indication: Aggression
  10. RIFAMPIN [Concomitant]
     Active Substance: RIFAMPIN
     Indication: Pulmonary tuberculosis
  11. PYRAZINAMIDE [Concomitant]
     Active Substance: PYRAZINAMIDE
     Indication: Pulmonary tuberculosis
  12. ETHAMBUTOL [Concomitant]
     Active Substance: ETHAMBUTOL HYDROCHLORIDE
     Indication: Pulmonary tuberculosis
  13. GUANFACINE [Concomitant]
     Active Substance: GUANFACINE
     Indication: Agitation
  14. LORAZEPAM [Concomitant]
     Active Substance: LORAZEPAM
     Indication: Agitation
  15. LORAZEPAM [Concomitant]
     Active Substance: LORAZEPAM
     Dosage: SLOWLY REDUCED TO 6 MG/DAY OVER THREE WEEKS.
  16. HALOPERIDOL [Concomitant]
     Active Substance: HALOPERIDOL
     Indication: Agitation
     Route: 042
  17. RAMELTEON [Concomitant]
     Active Substance: RAMELTEON
     Indication: Product used for unknown indication
  18. DARIDOREXANT [Concomitant]
     Active Substance: DARIDOREXANT
     Indication: Product used for unknown indication

REACTIONS (1)
  - Serotonin syndrome [Not Recovered/Not Resolved]
